FAERS Safety Report 9184175 (Version 1)
Quarter: 2013Q1

REPORT INFORMATION
  Report Type: Spontaneous
  Country: US (occurrence: US)
  Receive Date: 20130322
  Receipt Date: 20130322
  Transmission Date: 20140127
  Serious: Yes (Other)
  Sender: FDA-Public Use
  Company Number: US-BRISTOL-MYERS SQUIBB COMPANY-16453862

PATIENT
  Age: 59 Year
  Sex: Male
  Weight: 86 kg

DRUGS (8)
  1. ERBITUX [Suspect]
     Indication: HEAD AND NECK CANCER
     Dosage: RE-STARTED 2-3 WEEKS AGO ROUTE:IVPB RESTARTED ON :14FEB2012,17/FEB,2/MAR,16MAR,23MAR 30MAR,06APR12,
     Route: 042
     Dates: start: 2007
  2. CARBOPLATIN [Suspect]
     Indication: LUNG NEOPLASM MALIGNANT
     Route: 042
     Dates: start: 20120203
  3. CARBOPLATIN [Suspect]
     Indication: HEAD AND NECK CANCER
     Route: 042
     Dates: start: 20120203
  4. TAXOTERE [Suspect]
     Indication: LUNG NEOPLASM MALIGNANT
     Route: 042
     Dates: start: 20120203
  5. TAXOTERE [Suspect]
     Indication: HEAD AND NECK CANCER
     Route: 042
     Dates: start: 20120203
  6. DECADRON [Concomitant]
     Route: 042
     Dates: start: 20120203
  7. BENADRYL [Concomitant]
     Route: 042
     Dates: start: 20120203
  8. ALOXI [Concomitant]
     Route: 042
     Dates: start: 20120203

REACTIONS (6)
  - Metastasis [Unknown]
  - Oral mucosal blistering [Unknown]
  - Alopecia [Unknown]
  - Onychoclasis [Unknown]
  - Rhinorrhoea [Unknown]
  - Sinus disorder [Unknown]
